FAERS Safety Report 4698197-1 (Version None)
Quarter: 2005Q2

REPORT INFORMATION
  Report Type: 
  Country: None (occurrence: None)
  Receive Date: 20050623
  Receipt Date: 20050615
  Transmission Date: 20051028
  Serious: Yes (Hospitalization)
  Sender: FDA-Public Use
  Company Number: US-MERCK-0506USA02386

PATIENT
  Age: 15 Year
  Sex: Male

DRUGS (5)
  1. EMEND [Suspect]
     Route: 048
     Dates: start: 20050614, end: 20050614
  2. EMEND [Suspect]
     Route: 048
  3. DECADRON [Suspect]
     Route: 048
  4. ONDANSETRON [Suspect]
     Route: 065
  5. METHOTREXATE [Suspect]
     Route: 065

REACTIONS (4)
  - DYSPNOEA [None]
  - HYPOTENSION [None]
  - INFUSION RELATED REACTION [None]
  - PRURITUS [None]
